FAERS Safety Report 18621976 (Version 3)
Quarter: 2021Q1

REPORT INFORMATION
  Report Type: Spontaneous
  Country: US (occurrence: US)
  Receive Date: 20201216
  Receipt Date: 20210108
  Transmission Date: 20210419
  Serious: Yes (Other)
  Sender: FDA-Public Use
  Company Number: US-009507513-2012USA005736

PATIENT
  Age: 81 Year
  Sex: Female

DRUGS (2)
  1. IBANDRONATE SODIUM. [Suspect]
     Active Substance: IBANDRONATE SODIUM
     Indication: OSTEOPOROSIS
     Dosage: 150 MG, MONTHLY
     Route: 065
     Dates: start: 201006
  2. FOSAMAX [Suspect]
     Active Substance: ALENDRONATE SODIUM
     Indication: OSTEOPOROSIS
     Dosage: 70 MG, WEEKLY
     Route: 065
     Dates: start: 200605, end: 201005

REACTIONS (3)
  - Atypical femur fracture [Recovered/Resolved]
  - Periprosthetic fracture [Recovered/Resolved]
  - Stress fracture [Recovered/Resolved]
